FAERS Safety Report 13924837 (Version 1)
Quarter: 2017Q3

REPORT INFORMATION
  Report Type: Spontaneous
  Country: FR (occurrence: FR)
  Receive Date: 20170831
  Receipt Date: 20170831
  Transmission Date: 20171127
  Serious: Yes (Other)
  Sender: FDA-Public Use
  Company Number: FR-GLAXOSMITHKLINE-FR2017GSK133859

PATIENT
  Sex: Female

DRUGS (1)
  1. REQUIP LP [Suspect]
     Active Substance: ROPINIROLE HYDROCHLORIDE
     Indication: PARKINSON^S DISEASE
     Dosage: 16 MG, 1D
     Route: 048
     Dates: start: 20130101, end: 20170721

REACTIONS (5)
  - Compulsive shopping [Recovering/Resolving]
  - Obsessive thoughts [Recovering/Resolving]
  - Hallucination, visual [Recovering/Resolving]
  - Hallucination, auditory [Recovering/Resolving]
  - Aggression [Recovering/Resolving]

NARRATIVE: CASE EVENT DATE: 2015
